FAERS Safety Report 7474979-8 (Version None)
Quarter: 2011Q1

REPORT INFORMATION
  Report Type: 
  Country: None (occurrence: None)
  Receive Date: 20110302
  Receipt Date: 20101102
  Transmission Date: 20110831
  Serious: Yes (Hospitalization)
  Sender: FDA-Public Use
  Company Number: 163-21880-10091331

PATIENT
  Age: 83 Year
  Sex: Female

DRUGS (6)
  1. DEXAMETHASONE [Concomitant]
  2. REVLIMID [Suspect]
     Indication: MULTIPLE MYELOMA
     Dosage: 15 MG, DAILY X 14, PO; 25 MG, DAILY X 14 DAYS, PO
     Route: 048
     Dates: start: 20070201
  3. COUMADIN [Concomitant]
  4. RED BLOOD CELLS (RED BLOOD CELLS) [Concomitant]
  5. ASPIRIN [Concomitant]
  6. DIURETICS (DIURETICS) [Concomitant]

REACTIONS (2)
  - HEAD INJURY [None]
  - FALL [None]
